FAERS Safety Report 6277938-6 (Version None)
Quarter: 2009Q3

REPORT INFORMATION
  Report Type: 
  Country: None (occurrence: None)
  Receive Date: 20090720
  Receipt Date: 20090709
  Transmission Date: 20100115
  Serious: Yes (Other)
  Sender: FDA-Public Use
  Company Number: ADR6582009 (ARROW LOG NO: 2009AG0186)

PATIENT
  Age: 37 Year
  Sex: Female

DRUGS (2)
  1. LAMOTRIGINE [Suspect]
  2. PHENYTOIN [Concomitant]

REACTIONS (2)
  - CROSS SENSITIVITY REACTION [None]
  - RASH [None]
